FAERS Safety Report 9011951 (Version 3)
Quarter: 2014Q2

REPORT INFORMATION
  Report Type: Report from Study
  Country: AU (occurrence: AU)
  Receive Date: 20130107
  Receipt Date: 20140419
  Transmission Date: 20141212
  Serious: Yes (Death, Other)
  Sender: FDA-Public Use
  Company Number: AU-ROCHE-1177146

PATIENT
  Age: 87 Year
  Sex: Female

DRUGS (2)
  1. RANIBIZUMAB [Suspect]
     Indication: PRODUCT USED FOR UNKNOWN INDICATION
     Dosage: LAST DOSE ON 30/OCT/2012
     Route: 050
     Dates: start: 20100527
  2. RANIBIZUMAB [Suspect]
     Route: 050
     Dates: start: 20121030, end: 20121030

REACTIONS (2)
  - Cardiac failure congestive [Fatal]
  - Myocardial infarction [Unknown]
